FAERS Safety Report 5821320-X (Version None)
Quarter: 2008Q3

REPORT INFORMATION
  Report Type: 
  Country: None (occurrence: None)
  Receive Date: 20080724
  Receipt Date: 20080718
  Transmission Date: 20090109
  Serious: Yes (Disabling)
  Sender: FDA-Public Use
  Company Number: US-MERCK-0807USA03830

PATIENT
  Age: 67 Year
  Sex: Female

DRUGS (4)
  1. IVEMEND [Suspect]
     Indication: PROPHYLAXIS OF NAUSEA AND VOMITING
     Route: 042
     Dates: start: 20080717
  2. IVEMEND [Suspect]
     Route: 042
     Dates: start: 20080717
  3. ATIVAN [Concomitant]
     Route: 065
  4. BENADRYL [Suspect]
     Route: 042

REACTIONS (3)
  - CONFUSIONAL STATE [None]
  - HALLUCINATION [None]
  - INCOHERENT [None]
